APPROVED DRUG PRODUCT: KADIAN
Active Ingredient: MORPHINE SULFATE
Strength: 60MG
Dosage Form/Route: CAPSULE, EXTENDED RELEASE;ORAL
Application: N020616 | Product #005
Applicant: ALLERGAN SALES LLC
Approved: Mar 9, 2001 | RLD: Yes | RS: No | Type: DISCN